FAERS Safety Report 16042684 (Version 1)
Quarter: 2019Q1

REPORT INFORMATION
  Report Type: Spontaneous
  Country: GB (occurrence: GB)
  Receive Date: 20190306
  Receipt Date: 20190306
  Transmission Date: 20190418
  Serious: Yes (Life-Threatening, Hospitalization, Other)
  Sender: FDA-Public Use
  Company Number: GB-TEVA-2019-GB-1019449

PATIENT
  Sex: Female

DRUGS (1)
  1. CLONIDINE. [Suspect]
     Active Substance: CLONIDINE
     Indication: MENOPAUSAL SYMPTOMS
     Dosage: 1 DOSAGE FORMS DAILY; 1 DF, BID
     Route: 065
     Dates: start: 20180720

REACTIONS (22)
  - Somnolence [Unknown]
  - Apparent death [Recovering/Resolving]
  - Hallucination [Unknown]
  - Asthenia [Unknown]
  - Feeling abnormal [Unknown]
  - Malaise [Unknown]
  - Seizure [Recovering/Resolving]
  - Eating disorder [Unknown]
  - Dysphagia [Unknown]
  - Coma [Recovering/Resolving]
  - Ill-defined disorder [Unknown]
  - Anxiety [Unknown]
  - Confusional state [Unknown]
  - Vomiting [Unknown]
  - Urinary retention [Unknown]
  - Dysgeusia [Unknown]
  - Hyponatraemia [Unknown]
  - Fatigue [Unknown]
  - Injury [Unknown]
  - Inappropriate antidiuretic hormone secretion [Unknown]
  - Drug intolerance [Unknown]
  - Memory impairment [Unknown]

NARRATIVE: CASE EVENT DATE: 20180730
